FAERS Safety Report 6442876-2 (Version None)
Quarter: 2009Q4

REPORT INFORMATION
  Report Type: 
  Country: None (occurrence: None)
  Receive Date: 20091117
  Receipt Date: 20091106
  Transmission Date: 20100525
  Serious: Yes (Other)
  Sender: FDA-Public Use
  Company Number: US-BRISTOL-MYERS SQUIBB COMPANY-14849798

PATIENT

DRUGS (1)
  1. ONGLYZA TABS [Suspect]

REACTIONS (2)
  - DRUG INTERACTION [None]
  - LYMPHOCYTE COUNT DECREASED [None]
